FAERS Safety Report 18766957 (Version 1)
Quarter: 2021Q1

REPORT INFORMATION
  Report Type: Spontaneous
  Country: US (occurrence: US)
  Receive Date: 20210119
  Receipt Date: 20210119
  Transmission Date: 20210419
  Serious: Yes (Hospitalization)
  Sender: FDA-Public Use
  Company Number: None

PATIENT
  Sex: Female

DRUGS (14)
  1. FUROSEMIDE. [Concomitant]
     Active Substance: FUROSEMIDE
  2. ALDACTONE [Concomitant]
     Active Substance: SPIRONOLACTONE
  3. LETAIRIS [Concomitant]
     Active Substance: AMBRISENTAN
  4. ZOLOFT [Concomitant]
     Active Substance: SERTRALINE HYDROCHLORIDE
  5. ADCIRCA [Concomitant]
     Active Substance: TADALAFIL
  6. NEURONTIN [Concomitant]
     Active Substance: GABAPENTIN
  7. OMEPRAZOLE. [Concomitant]
     Active Substance: OMEPRAZOLE
  8. FENOFIBRATE. [Concomitant]
     Active Substance: FENOFIBRATE
  9. FISH OIL [Concomitant]
     Active Substance: FISH OIL
  10. SILDENAFIL 20MG TAB [Suspect]
     Active Substance: SILDENAFIL
     Indication: PULMONARY ARTERIAL HYPERTENSION
     Route: 048
     Dates: start: 20171006
  11. ASPIRIN. [Concomitant]
     Active Substance: ASPIRIN
  12. DIGOXIN. [Concomitant]
     Active Substance: DIGOXIN
  13. PRAVASTATIN. [Concomitant]
     Active Substance: PRAVASTATIN
  14. CALCIFEROL DRO [Concomitant]

REACTIONS (2)
  - White blood cell count decreased [None]
  - Blood iron decreased [None]
